FAERS Safety Report 6380642-7 (Version None)
Quarter: 2009Q3

REPORT INFORMATION
  Report Type: 
  Country: None (occurrence: None)
  Receive Date: 20090929
  Receipt Date: 20090921
  Transmission Date: 20100115
  Serious: Yes (Other)
  Sender: FDA-Public Use
  Company Number: GB-ASTRAZENECA-2009SE14334

PATIENT
  Age: 82 Year
  Sex: Male
  Weight: 60.3 kg

DRUGS (5)
  1. QUETIAPINE FUMARATE [Suspect]
     Route: 048
     Dates: start: 20080814, end: 20090908
  2. OMEPRAZOLE [Concomitant]
  3. ASPIRIN [Concomitant]
  4. PHENYTOIN SODIUM [Concomitant]
  5. PRAVASTATIN [Concomitant]

REACTIONS (3)
  - DISORIENTATION [None]
  - DYSKINESIA [None]
  - FEELING ABNORMAL [None]
